FAERS Safety Report 9528135 (Version 4)
Quarter: 2014Q1

REPORT INFORMATION
  Report Type: Spontaneous
  Country: IE (occurrence: IE)
  Receive Date: 20130917
  Receipt Date: 20140203
  Transmission Date: 20141002
  Serious: Yes (Hospitalization, Other)
  Sender: FDA-Public Use
  Company Number: PHFR2013IE005252

PATIENT
  Age: 55 Year
  Sex: Male

DRUGS (8)
  1. CLOZARIL [Suspect]
     Indication: SCHIZOPHRENIA
     Dosage: 450 MG, DAILY
     Route: 048
     Dates: start: 20010315
  2. ASPIRIN [Concomitant]
     Dosage: 75 MG, DAILY
     Route: 048
  3. ATORVASTATIN [Concomitant]
     Dosage: 10 MG, DAILY
     Route: 048
  4. CYPROTERONE ACETATE [Concomitant]
     Dosage: 100 MG, DAILY
     Route: 048
  5. DULOXETINE [Concomitant]
     Dosage: 120 MG, DAILY
     Route: 048
  6. HALOPERIDOL [Concomitant]
     Indication: SCHIZOPHRENIA
     Dosage: 3 MG, DAILY
     Route: 048
  7. LANSOPRAZOLE [Concomitant]
     Dosage: 30 MG, DAILY
     Route: 048
  8. METOPROLOL [Concomitant]
     Dosage: 50 MG, DAILY
     Route: 048

REACTIONS (5)
  - Infection [Recovered/Resolved with Sequelae]
  - Pleural effusion [Recovered/Resolved with Sequelae]
  - Lower respiratory tract infection [Recovered/Resolved with Sequelae]
  - White blood cell count increased [Recovered/Resolved]
  - Neutrophil count increased [Recovered/Resolved]
